FAERS Safety Report 5773168-2 (Version None)
Quarter: 2008Q2

REPORT INFORMATION
  Report Type: 
  Country: None (occurrence: None)
  Receive Date: 20080616
  Receipt Date: 20080314
  Transmission Date: 20081010
  Serious: No
  Sender: FDA-Public Use
  Company Number: US-BAYER-200811176BCC

PATIENT
  Age: 53 Year
  Sex: Female
  Weight: 91 kg

DRUGS (6)
  1. ALEVE (CAPLET) [Suspect]
     Indication: NECK PAIN
     Dosage: UNIT DOSE: 220 MG
     Route: 048
     Dates: start: 20080307, end: 20080301
  2. LITHIUM CARBONATE [Concomitant]
  3. LAMICTAL [Concomitant]
  4. CLONAZEPAM [Concomitant]
  5. EFFEXOR [Concomitant]
  6. DRIXORAL [Concomitant]

REACTIONS (3)
  - DISORIENTATION [None]
  - MENTAL IMPAIRMENT [None]
  - UNEVALUABLE EVENT [None]
